FAERS Safety Report 10699723 (Version 2)
Quarter: 2014Q4

REPORT INFORMATION
  Report Type: Spontaneous
  Country: US (occurrence: None)
  Receive Date: 20141224
  Receipt Date: 20141224
  Transmission Date: 20150529
  Serious: Yes (Other)
  Sender: FDA-Public Use
  Company Number: LIT-136-14-US

PATIENT
  Age: 48 Year
  Sex: Male

DRUGS (1)
  1. HUMAN NORMAL IMMUNOGLOBULIN [Suspect]
     Active Substance: HUMAN IMMUNOGLOBULIN G
     Indication: POLYMYOSITIS
     Dosage: UNK?
     Route: 042
     Dates: start: 20140707, end: 20140710

REACTIONS (3)
  - Myocardial infarction [None]
  - Coronary artery occlusion [None]
  - Polymyositis [None]

NARRATIVE: CASE EVENT DATE: 20140717
